FAERS Safety Report 7239364-2 (Version None)
Quarter: 2011Q1

REPORT INFORMATION
  Report Type: 
  Country: None (occurrence: None)
  Receive Date: 20110121
  Receipt Date: 20110119
  Transmission Date: 20110831
  Serious: Yes (Hospitalization)
  Sender: FDA-Public Use
  Company Number: PL-ABBOTT-11P-129-0699157-00

PATIENT
  Sex: Female
  Weight: 68 kg

DRUGS (5)
  1. LACTOBACILLUS RHAMNOSUS [Concomitant]
     Indication: PRODUCT USED FOR UNKNOWN INDICATION
  2. KLACID TABLETS [Suspect]
     Indication: TRACHEITIS
     Route: 048
     Dates: start: 20101223
  3. ACIDUM ACETYLSALICYLICUM [Concomitant]
     Indication: PRODUCT USED FOR UNKNOWN INDICATION
  4. NATRII BENZOAS [Concomitant]
     Indication: PRODUCT USED FOR UNKNOWN INDICATION
  5. TANTUM VERDE [Concomitant]
     Indication: PRODUCT USED FOR UNKNOWN INDICATION

REACTIONS (2)
  - DYSPNOEA [None]
  - RASH MACULO-PAPULAR [None]
